FAERS Safety Report 12094941 (Version 1)
Quarter: 2016Q1

REPORT INFORMATION
  Report Type: Spontaneous
  Country: TW (occurrence: TW)
  Receive Date: 20160219
  Receipt Date: 20160219
  Transmission Date: 20160526
  Serious: No
  Sender: FDA-Public Use
  Company Number: TW-PERNIX THERAPEUTICS-2015PT000164

PATIENT

DRUGS (1)
  1. CEFTIBUTEN. [Suspect]
     Active Substance: CEFTIBUTEN
     Dosage: UNK
     Route: 048

REACTIONS (1)
  - Rash [Recovered/Resolved]
